FAERS Safety Report 4617837-6 (Version None)
Quarter: 2005Q1

REPORT INFORMATION
  Report Type: 
  Country: None (occurrence: None)
  Receive Date: 20050324
  Receipt Date: 20050317
  Transmission Date: 20050727
  Serious: Yes (Other)
  Sender: FDA-Public Use
  Company Number: BR-GLAXOSMITHKLINE-A0550469A

PATIENT
  Age: 33 Year
  Sex: Female
  Weight: 60 kg

DRUGS (1)
  1. ZYBAN [Suspect]
     Indication: CHEMICAL POISONING
     Dosage: 150MG SEE DOSAGE TEXT
     Route: 048
     Dates: start: 20050310, end: 20050317

REACTIONS (5)
  - ABDOMINAL PAIN [None]
  - DIZZINESS [None]
  - INSOMNIA [None]
  - NAUSEA [None]
  - OEDEMATOUS PANCREATITIS [None]
